FAERS Safety Report 15939672 (Version 1)
Quarter: 2019Q1

REPORT INFORMATION
  Report Type: Spontaneous
  Country: US (occurrence: US)
  Receive Date: 20190208
  Receipt Date: 20190208
  Transmission Date: 20190417
  Serious: Yes (Other)
  Sender: FDA-Public Use
  Company Number: US-PFIZER INC-2019054485

PATIENT
  Age: 42 Year
  Sex: Male

DRUGS (2)
  1. KETAMINE HCL [Suspect]
     Active Substance: KETAMINE HYDROCHLORIDE
     Dosage: UNK (CONTINUOUS INFUSION OF 0.12 MG/KG/H (10 MG/H) TOTAL OF 140MG)
     Route: 042
  2. KETAMINE HCL [Suspect]
     Active Substance: KETAMINE HYDROCHLORIDE
     Indication: PAIN
     Dosage: 1 MG/KG, UNK (LOADING DOSE 60MG)
     Route: 042

REACTIONS (1)
  - Diabetes insipidus [Recovered/Resolved]
